FAERS Safety Report 19808642 (Version 1)
Quarter: 2021Q3

REPORT INFORMATION
  Report Type: Spontaneous
  Country: US (occurrence: US)
  Receive Date: 20210903
  Receipt Date: 20210903
  Transmission Date: 20211014
  Serious: No
  Sender: FDA-Public Use
  Company Number: None

PATIENT
  Sex: Male

DRUGS (1)
  1. ZOMACTON [Suspect]
     Active Substance: SOMATROPIN
     Indication: HYPOPITUITARISM
     Dosage: ?          OTHER STRENGTH:5MG/VL;?
     Route: 058
     Dates: start: 20210902

REACTIONS (1)
  - Incorrect dose administered [None]
